FAERS Safety Report 5062663-X (Version None)
Quarter: 2006Q3

REPORT INFORMATION
  Report Type: 
  Country: None (occurrence: None)
  Receive Date: 20060721
  Receipt Date: 20060707
  Transmission Date: 20061208
  Serious: Yes (Death, Hospitalization)
  Sender: FDA-Public Use
  Company Number: 2006S1000058

PATIENT
  Age: 98 Year
  Sex: Male

DRUGS (7)
  1. CUBICIN [Suspect]
     Indication: BACTERAEMIA
     Dosage: 300 MG;Q48H;IV
     Route: 042
     Dates: start: 20051121
  2. LEVOFLOXACIN [Concomitant]
  3. VANCOMYCIN [Concomitant]
  4. RIFAMPIN [Concomitant]
  5. TIGECYCLINE [Concomitant]
  6. VANCOMYCIN [Concomitant]
  7. RIFAMPIN [Concomitant]

REACTIONS (8)
  - ANOREXIA [None]
  - BACTERIAL INFECTION [None]
  - CARDIAC FAILURE [None]
  - GENERAL PHYSICAL HEALTH DETERIORATION [None]
  - NAUSEA [None]
  - ORAL INTAKE REDUCED [None]
  - PLATELET COUNT DECREASED [None]
  - SUPERINFECTION [None]
